FAERS Safety Report 9229025 (Version 3)
Quarter: 2013Q2

REPORT INFORMATION
  Report Type: Report from Study
  Country: DE (occurrence: DE)
  Receive Date: 20130412
  Receipt Date: 20130530
  Transmission Date: 20140414
  Serious: Yes (Death)
  Sender: FDA-Public Use
  Company Number: DE-ABBOTT-13P-062-1076052-00

PATIENT
  Age: 77 Year
  Sex: Male

DRUGS (6)
  1. TRENANTONE [Suspect]
     Indication: PROSTATE CANCER
     Route: 058
     Dates: start: 20110823
  2. TRENANTONE [Suspect]
     Route: 058
     Dates: start: 20120703
  3. AGENTS ACTING ON THE RENIN-ANGIOTENSIN SYSTEM [Concomitant]
     Indication: PRODUCT USED FOR UNKNOWN INDICATION
     Route: 065
  4. BETA BLOCKING AGENTS [Concomitant]
     Indication: PRODUCT USED FOR UNKNOWN INDICATION
     Route: 065
  5. STATIN (HMG COA REDUCTASE INHIBITORS) [Concomitant]
     Indication: PRODUCT USED FOR UNKNOWN INDICATION
     Route: 065
  6. HMG COA REDUCTASE INHIBITORS [Concomitant]
     Indication: PRODUCT USED FOR UNKNOWN INDICATION
     Route: 065

REACTIONS (4)
  - Fall [Fatal]
  - Fat embolism [Fatal]
  - Cerebrovascular accident [Fatal]
  - Femur fracture [Fatal]
